FAERS Safety Report 9328463 (Version 1)
Quarter: 2013Q2

REPORT INFORMATION
  Report Type: Spontaneous
  Country: US (occurrence: US)
  Receive Date: 20130604
  Receipt Date: 20130604
  Transmission Date: 20140414
  Serious: Yes (Other)
  Sender: FDA-Public Use
  Company Number: US-SANOFI-AVENTIS-2012SA001748

PATIENT
  Sex: Male

DRUGS (1)
  1. LANTUS [Suspect]
     Indication: TYPE 2 DIABETES MELLITUS
     Dosage: AS MUCH AS 340 UNITS A DAY
     Route: 058

REACTIONS (2)
  - Hypoglycaemia [Recovered/Resolved]
  - Glycosylated haemoglobin increased [Recovered/Resolved]
